FAERS Safety Report 6650494-6 (Version None)
Quarter: 2010Q1

REPORT INFORMATION
  Report Type: 
  Country: None (occurrence: None)
  Receive Date: 20100325
  Receipt Date: 20100302
  Transmission Date: 20100710
  Serious: No
  Sender: FDA-Public Use
  Company Number: US-BIOGENIDEC-2010BI006942

PATIENT
  Age: 39 Year
  Sex: Male

DRUGS (1)
  1. AVONEX [Suspect]
     Indication: MULTIPLE SCLEROSIS
     Route: 030
     Dates: start: 20060501

REACTIONS (4)
  - COGNITIVE DISORDER [None]
  - GOUT [None]
  - MUSCULAR WEAKNESS [None]
  - PAIN IN EXTREMITY [None]
